FAERS Safety Report 5493603-7 (Version None)
Quarter: 2007Q4

REPORT INFORMATION
  Report Type: 
  Country: None (occurrence: None)
  Receive Date: 20071023
  Receipt Date: 20071008
  Transmission Date: 20080405
  Serious: Yes (Hospitalization)
  Sender: FDA-Public Use
  Company Number: GB-RANBAXY-2007RR-10205

PATIENT

DRUGS (5)
  1. CLARITHROMYCIN 500MG TABLETS [Suspect]
     Indication: LOWER RESPIRATORY TRACT INFECTION
     Dosage: 500 MG, BID
     Route: 048
     Dates: start: 19970819, end: 19970830
  2. VIRAMUNE [Suspect]
     Indication: HIV INFECTION
     Dosage: 200 MG, BID
     Route: 048
     Dates: start: 19970707
  3. DIDANOSINE [Suspect]
     Indication: HIV INFECTION
     Dosage: 200 MG, BID
     Route: 048
     Dates: start: 19970707
  4. SIMVASTATIN 20MG TABLETS [Suspect]
     Indication: HYPERCHOLESTEROLAEMIA
     Dosage: 20 MG, QD
     Route: 048
  5. ZIDOVUDINE [Suspect]
     Indication: HIV INFECTION
     Dosage: 250 MG, BID
     Route: 048
     Dates: start: 19970707

REACTIONS (12)
  - ABNORMAL BEHAVIOUR [None]
  - ANXIETY [None]
  - DISTURBANCE IN ATTENTION [None]
  - DRUG INTERACTION [None]
  - DRUG LEVEL INCREASED [None]
  - HOMICIDAL IDEATION [None]
  - MENTAL STATUS CHANGES [None]
  - NEUROSIS [None]
  - PSYCHIATRIC SYMPTOM [None]
  - PSYCHOMOTOR HYPERACTIVITY [None]
  - SPEECH DISORDER [None]
  - SUICIDAL IDEATION [None]
